FAERS Safety Report 7329333-6 (Version None)
Quarter: 2011Q1

REPORT INFORMATION
  Report Type: 
  Country: None (occurrence: None)
  Receive Date: 20110218
  Receipt Date: 20110208
  Transmission Date: 20110831
  Serious: Yes (Death)
  Sender: FDA-Public Use
  Company Number: 026999

PATIENT
  Age: 29 Year
  Sex: Male

DRUGS (8)
  1. KEPPRA [Suspect]
     Indication: EPILEPSY
     Dosage: (1000 MG QD ORAL) ; (2000 MG ORAL) ; (3000 MG ORAL)
     Route: 048
     Dates: start: 20101119, end: 20101214
  2. KEPPRA [Suspect]
     Indication: EPILEPSY
     Dosage: (1000 MG QD ORAL) ; (2000 MG ORAL) ; (3000 MG ORAL)
     Route: 048
     Dates: start: 20101008, end: 20101118
  3. KEPPRA [Suspect]
     Indication: EPILEPSY
     Dosage: (1000 MG QD ORAL) ; (2000 MG ORAL) ; (3000 MG ORAL)
     Route: 048
     Dates: start: 20101215, end: 20110119
  4. CLONAZEPAM [Suspect]
     Dosage: (4 MG ORAL)
     Route: 048
     Dates: start: 20100801, end: 20110119
  5. PRIMIDONE [Suspect]
     Dosage: (750 MG ORAL)
     Route: 048
     Dates: start: 20100801, end: 20110119
  6. HORIZON (HORIZON) [Suspect]
     Dosage: (5 MG ORAL)
     Route: 048
     Dates: start: 20100801, end: 20110119
  7. TEGRETOL [Suspect]
     Dosage: (400 MG ORAL)
     Route: 048
     Dates: start: 20100801, end: 20110119
  8. PHENYTOIN [Suspect]
     Dosage: (250 MG ORAL)
     Route: 048
     Dates: start: 20100801, end: 20110119

REACTIONS (4)
  - ARTERIAL INJURY [None]
  - INJURY [None]
  - HEADACHE [None]
  - NAUSEA [None]
